FAERS Safety Report 8466798-0 (Version None)
Quarter: 2012Q2

REPORT INFORMATION
  Report Type: 
  Country: None (occurrence: None)
  Receive Date: 20120626
  Receipt Date: 20120621
  Transmission Date: 20120825
  Serious: Yes (Other)
  Sender: FDA-Public Use
  Company Number: US-PFIZER INC-2012150060

PATIENT
  Sex: Male

DRUGS (5)
  1. CHANTIX [Suspect]
     Dosage: UNK
  2. LOTRISONE [Concomitant]
     Dosage: 1-0.05%, 2X/DAY TO AFFECTED AREA
     Route: 061
     Dates: start: 20120529
  3. BENICAR HCT [Concomitant]
     Dosage: 40-12.5 MG, 1X/DAY
     Route: 048
     Dates: start: 20120417
  4. ALBUTEROL [Concomitant]
     Dosage: 90 MCG, (ACTUATION AEROSOL, 2 PUFFS BY INHALATION ROUTE EVERY 4-6 HOURS AS NEEDED)
     Dates: start: 20120501
  5. HYDROCHLOROTHIAZIDE [Concomitant]
     Dosage: 12.5 MG, 1X/DAY
     Route: 048
     Dates: start: 20120501

REACTIONS (12)
  - PELVIC MASS [None]
  - ECZEMA [None]
  - ABNORMAL WEIGHT GAIN [None]
  - ABDOMINAL DISTENSION [None]
  - ABDOMINAL PAIN [None]
  - PROSTATE CANCER [None]
  - ABDOMINAL MASS [None]
  - PETIT MAL EPILEPSY [None]
  - ESSENTIAL HYPERTENSION [None]
  - CHRONIC OBSTRUCTIVE PULMONARY DISEASE [None]
  - TYPE 1 DIABETES MELLITUS [None]
  - DERMATITIS CONTACT [None]
